FAERS Safety Report 11360984 (Version 4)
Quarter: 2015Q4

REPORT INFORMATION
  Report Type: Spontaneous
  Country: US (occurrence: US)
  Receive Date: 20150810
  Receipt Date: 20151009
  Transmission Date: 20160304
  Serious: No
  Sender: FDA-Public Use
  Company Number: US-PFIZER INC-2015255062

PATIENT
  Age: 84 Year
  Sex: Female

DRUGS (7)
  1. ARMOUR THYROID [Concomitant]
     Active Substance: THYROID, PORCINE\THYROID, UNSPECIFIED
     Dosage: UNK
  2. LIPITOR [Suspect]
     Active Substance: ATORVASTATIN CALCIUM
     Indication: BLOOD CHOLESTEROL ABNORMAL
     Dosage: 20 MG, DAILY
  3. BABY ASPIRIN [Concomitant]
     Active Substance: ASPIRIN
     Dosage: 1 DF, 1X/DAY
  4. LOVAZA [Suspect]
     Active Substance: OMEGA-3-ACID ETHYL ESTERS
     Indication: ROUTINE HEALTH MAINTENANCE
     Dosage: 1 DF, DAILY
  5. TYLENOL EXTRA STRENGTH [Concomitant]
     Active Substance: ACETAMINOPHEN
     Dosage: 1 DF, 2X/DAY (1 IN A.M., 1 IN P.M.)
  6. LIPITOR [Suspect]
     Active Substance: ATORVASTATIN CALCIUM
     Indication: BLOOD TRIGLYCERIDES ABNORMAL
  7. VITAMINS NOS [Suspect]
     Active Substance: VITAMINS
     Dosage: UNK

REACTIONS (2)
  - Vomiting [Recovered/Resolved]
  - Gastrooesophageal reflux disease [Recovering/Resolving]
